FAERS Safety Report 10238727 (Version 3)
Quarter: 2014Q3

REPORT INFORMATION
  Report Type: Spontaneous
  Country: JP (occurrence: JP)
  Receive Date: 20140616
  Receipt Date: 20140811
  Transmission Date: 20150326
  Serious: Yes (Hospitalization)
  Sender: FDA-Public Use
  Company Number: JP-NOVOPROD-412976

PATIENT
  Age: 81 Year
  Sex: Female
  Weight: 41 kg

DRUGS (3)
  1. NOVORAPID [Suspect]
     Active Substance: INSULIN ASPART
     Indication: LATENT AUTOIMMUNE DIABETES IN ADULTS
     Dosage: 10 IU, QD
     Route: 058
     Dates: start: 20060607, end: 20130719
  2. LANTUS [Concomitant]
     Active Substance: INSULIN GLARGINE
     Indication: LATENT AUTOIMMUNE DIABETES IN ADULTS
     Dosage: 4 IU, QD
     Route: 058
     Dates: start: 20091218, end: 20130614
  3. LEVEMIR [Suspect]
     Active Substance: INSULIN DETEMIR
     Indication: DIABETES MELLITUS
     Dosage: 4 IU, QD
     Route: 058
     Dates: start: 20130620, end: 20130719

REACTIONS (3)
  - Gastroenteritis eosinophilic [Recovering/Resolving]
  - Hypoglycaemia [Unknown]
  - Diabetes mellitus inadequate control [Unknown]

NARRATIVE: CASE EVENT DATE: 20130712
